FAERS Safety Report 17082034 (Version 1)
Quarter: 2019Q4

REPORT INFORMATION
  Report Type: Spontaneous
  Country: US (occurrence: US)
  Receive Date: 20191127
  Receipt Date: 20191127
  Transmission Date: 20200122
  Serious: No
  Sender: FDA-Public Use
  Company Number: US-PFIZER INC-2018179363

PATIENT
  Age: 11 Year
  Sex: Male
  Weight: 49.9 kg

DRUGS (1)
  1. GENOTROPIN [Suspect]
     Active Substance: SOMATROPIN
     Indication: GROWTH DISORDER
     Dosage: 1 MG, DAILY (7 DAYS PER WEEK)
     Dates: start: 20180414

REACTIONS (3)
  - Device issue [Unknown]
  - Arthralgia [Unknown]
  - Product dose omission [Unknown]
